FAERS Safety Report 10228185 (Version 1)
Quarter: 2014Q2

REPORT INFORMATION
  Report Type: Spontaneous
  Country: US (occurrence: None)
  Receive Date: 20140609
  Receipt Date: 20140609
  Transmission Date: 20141212
  Serious: Yes (Hospitalization, Disabling, Other)
  Sender: FDA-Public Use
  Company Number: None

PATIENT
  Age: 61 Year
  Sex: Female
  Weight: 81.65 kg

DRUGS (2)
  1. ALINIA [Suspect]
     Indication: DIARRHOEA
     Dosage: 3X 305 DAYS EACH
     Route: 048
  2. ALINIA [Suspect]
     Indication: BLASTOCYSTIS INFECTION
     Dosage: 3X 305 DAYS EACH
     Route: 048

REACTIONS (4)
  - Gallbladder disorder [None]
  - Abdominal pain upper [None]
  - Influenza like illness [None]
  - Vomiting [None]
